FAERS Safety Report 9824497 (Version 1)
Quarter: 2014Q1

REPORT INFORMATION
  Report Type: Report from Study
  Country: DE (occurrence: DE)
  Receive Date: 20140116
  Receipt Date: 20140116
  Transmission Date: 20141002
  Serious: Yes (Hospitalization, Other)
  Sender: FDA-Public Use
  Company Number: DE-ROCHE-1308438

PATIENT
  Age: 84 Year
  Sex: Female

DRUGS (12)
  1. RANIBIZUMAB [Suspect]
     Indication: DIABETIC RETINAL OEDEMA
     Route: 050
     Dates: start: 20121211
  2. RANIBIZUMAB [Suspect]
     Indication: VISUAL IMPAIRMENT
     Route: 050
     Dates: start: 20131022
  3. RANIBIZUMAB [Suspect]
     Dosage: PRN 50 UG
     Route: 050
     Dates: start: 20131210
  4. ASPIRIN [Concomitant]
     Route: 065
     Dates: start: 20120817
  5. L-THYROXINE [Concomitant]
     Route: 065
     Dates: start: 20120817
  6. DOMINAL FORTE [Concomitant]
     Route: 065
     Dates: start: 20120817
  7. LISINOPRIL/HCTZ [Concomitant]
     Route: 065
     Dates: start: 20120817
  8. TORASEMIDE [Concomitant]
     Route: 065
     Dates: start: 20120817
  9. HCTZ [Concomitant]
     Route: 065
     Dates: start: 20120817
  10. SIMVASTATIN [Concomitant]
     Route: 065
     Dates: start: 20120817
  11. PROTAPHANE [Concomitant]
     Route: 065
     Dates: start: 20120817
  12. ACTRAPID HM [Concomitant]
     Route: 065
     Dates: start: 20120817

REACTIONS (7)
  - Atrial fibrillation [Recovered/Resolved]
  - Diabetic neuropathy [Unknown]
  - Retinal detachment [Unknown]
  - Retinal cyst [Unknown]
  - Metamorphopsia [Unknown]
  - Retinal oedema [Unknown]
  - Diabetic retinopathy [Unknown]
